FAERS Safety Report 7762183-5 (Version None)
Quarter: 2011Q3

REPORT INFORMATION
  Report Type: 
  Country: None (occurrence: None)
  Receive Date: 20110920
  Receipt Date: 20110907
  Transmission Date: 20111222
  Serious: Yes (Hospitalization)
  Sender: FDA-Public Use
  Company Number: FR-KINGPHARMUSA00001-K201101039

PATIENT
  Sex: Male
  Weight: 107 kg

DRUGS (8)
  1. ALTACE [Suspect]
     Indication: ESSENTIAL HYPERTENSION
     Dosage: 10 MG, QD
     Route: 048
     Dates: end: 20110405
  2. AMOXICILLIN [Concomitant]
     Dosage: 12 G DAILY I.V. IN SIX 2 G DOSES
     Route: 042
     Dates: start: 20110314, end: 20110406
  3. GARAMYCIN [Suspect]
     Indication: ACUTE ENDOCARDITIS
     Dosage: 100 MG, TID
     Route: 042
     Dates: start: 20110316, end: 20110404
  4. SIMVASTATIN [Concomitant]
  5. ALLOPURINOL [Concomitant]
     Dosage: 300 MG, QD
     Dates: end: 20110405
  6. ASPIRIN [Concomitant]
     Dosage: UNK
  7. FRAGMIN [Concomitant]
     Dosage: UNK
     Dates: start: 20110314, end: 20110401
  8. TORSEMIDE [Suspect]
     Indication: MYOCARDIAL ISCHAEMIA
     Dosage: 5-15 MG DAILY
     Route: 048
     Dates: start: 20110315

REACTIONS (6)
  - SEPSIS [None]
  - DRUG INTERACTION [None]
  - ENDOCARDITIS [None]
  - SYSTEMIC INFLAMMATORY RESPONSE SYNDROME [None]
  - RENAL FAILURE ACUTE [None]
  - DRUG LEVEL INCREASED [None]
